FAERS Safety Report 10590024 (Version 2)
Quarter: 2014Q4

REPORT INFORMATION
  Report Type: Report from Study
  Country: DE (occurrence: DE)
  Receive Date: 20141118
  Receipt Date: 20141217
  Transmission Date: 20150529
  Serious: Yes (Hospitalization, Other)
  Sender: FDA-Public Use
  Company Number: PHHY2014DE149952

PATIENT
  Sex: Female
  Weight: 65 kg

DRUGS (6)
  1. AFINITOR [Suspect]
     Active Substance: EVEROLIMUS
     Dosage: 2.5 MG, QD
     Route: 048
     Dates: start: 20141204
  2. AFINITOR [Suspect]
     Active Substance: EVEROLIMUS
     Indication: BREAST CANCER METASTATIC
     Dosage: 10 MG, QD
     Route: 048
     Dates: start: 20131120, end: 20131218
  3. AFINITOR [Suspect]
     Active Substance: EVEROLIMUS
     Dosage: 10 MG, QD
     Route: 048
     Dates: start: 20140226, end: 20140704
  4. AFINITOR [Suspect]
     Active Substance: EVEROLIMUS
     Dosage: 5 MG, QD
     Route: 048
     Dates: start: 20140914, end: 20140926
  5. AFINITOR [Suspect]
     Active Substance: EVEROLIMUS
     Dosage: 5 MG, QD
     Route: 048
     Dates: start: 20131231, end: 20140225
  6. EXEMESTANE. [Concomitant]
     Active Substance: EXEMESTANE
     Indication: BREAST CANCER METASTATIC
     Dosage: 25 MG, QD
     Route: 048
     Dates: start: 20131120

REACTIONS (3)
  - Stomatitis [Not Recovered/Not Resolved]
  - Depression [Not Recovered/Not Resolved]
  - Weight decreased [Not Recovered/Not Resolved]

NARRATIVE: CASE EVENT DATE: 20140919
